FAERS Safety Report 19602127 (Version 1)
Quarter: 2021Q3

REPORT INFORMATION
  Report Type: Spontaneous
  Country: US (occurrence: US)
  Receive Date: 20210722
  Receipt Date: 20210722
  Transmission Date: 20211014
  Serious: No
  Sender: FDA-Public Use
  Company Number: US-AMGEN-USASP2021110791

PATIENT
  Age: 78 Year
  Sex: Male
  Weight: 57.7 kg

DRUGS (3)
  1. MVASI [Suspect]
     Active Substance: BEVACIZUMAB-AWWB
     Indication: MESOTHELIOMA
     Dosage: UNK UNK, Q3WK
     Route: 065
     Dates: start: 20210315
  2. PEMETREXED. [Concomitant]
     Active Substance: PEMETREXED
     Dosage: UNK
  3. MVASI [Suspect]
     Active Substance: BEVACIZUMAB-AWWB
     Dosage: UNK
     Route: 065

REACTIONS (1)
  - Hyponatraemia [Unknown]

NARRATIVE: CASE EVENT DATE: 20210628
